FAERS Safety Report 5795099-4 (Version None)
Quarter: 2008Q2

REPORT INFORMATION
  Report Type: 
  Country: None (occurrence: None)
  Receive Date: 20080630
  Receipt Date: 20080409
  Transmission Date: 20081010
  Serious: No
  Sender: FDA-Public Use
  Company Number: US-BRISTOL-MYERS SQUIBB COMPANY-14144604

PATIENT
  Age: 55 Year
  Sex: Female
  Weight: 75 kg

DRUGS (8)
  1. ORENCIA [Suspect]
     Indication: RHEUMATOID ARTHRITIS
     Dosage: INFUSIONS ON 05MAR08,19MAR08 AND RECENTLY.
     Route: 042
     Dates: start: 20080305
  2. METHOTREXATE [Concomitant]
  3. FOLIC ACID [Concomitant]
  4. TAZTIA [Concomitant]
  5. METANX [Concomitant]
  6. AMITRIPTYLINE HCL [Concomitant]
  7. ONE-A-DAY [Concomitant]
  8. CENTRUM SILVER [Concomitant]

REACTIONS (1)
  - ARTHRALGIA [None]
